FAERS Safety Report 5369122-5 (Version None)
Quarter: 2007Q2

REPORT INFORMATION
  Report Type: 
  Country: None (occurrence: None)
  Receive Date: 20070625
  Receipt Date: 20070108
  Transmission Date: 20071010
  Serious: No
  Sender: FDA-Public Use
  Company Number: US-ASTRAZENECA-2007UW00422

PATIENT
  Age: 65 Year
  Sex: Male
  Weight: 77.1 kg

DRUGS (2)
  1. CRESTOR [Suspect]
     Indication: BLOOD CHOLESTEROL INCREASED
     Route: 048
     Dates: start: 20061001
  2. VITAMIN [Concomitant]

REACTIONS (1)
  - ALOPECIA [None]
